FAERS Safety Report 9571981 (Version 1)
Quarter: 2013Q4

REPORT INFORMATION
  Report Type: Spontaneous
  Country: US (occurrence: US)
  Receive Date: 20131001
  Receipt Date: 20131001
  Transmission Date: 20140711
  Serious: No
  Sender: FDA-Public Use
  Company Number: US-PURDUE-USA-2012-0080453

PATIENT
  Sex: Female

DRUGS (2)
  1. BUTRANS [Suspect]
     Indication: PAIN
     Dosage: 20 MCG, Q1H
     Route: 062
  2. PERCOCET                           /00446701/ [Concomitant]
     Indication: PAIN
     Dosage: UNK UNK, PRN

REACTIONS (3)
  - Rash [Unknown]
  - Erythema [Unknown]
  - Inadequate analgesia [Recovering/Resolving]
